FAERS Safety Report 6796125-6 (Version None)
Quarter: 2010Q2

REPORT INFORMATION
  Report Type: 
  Country: None (occurrence: None)
  Receive Date: 20100625
  Receipt Date: 20100614
  Transmission Date: 20101027
  Serious: Yes (Hospitalization)
  Sender: FDA-Public Use
  Company Number: FR-ELI_LILLY_AND_COMPANY-FR201006003351

PATIENT
  Sex: Male

DRUGS (2)
  1. HUMALOG MIX 75/25 [Suspect]
     Indication: TYPE 1 DIABETES MELLITUS
     Dosage: UNK, 3/D
     Route: 058
     Dates: start: 20100101
  2. LANTUS [Concomitant]
     Dosage: UNK, DAILY (1/D)
     Route: 065

REACTIONS (3)
  - DRUG DISPENSING ERROR [None]
  - HYPOGLYCAEMIA [None]
  - WRONG DRUG ADMINISTERED [None]
